FAERS Safety Report 25690845 (Version 2)
Quarter: 2025Q3

REPORT INFORMATION
  Report Type: Spontaneous
  Country: US (occurrence: US)
  Receive Date: 20250818
  Receipt Date: 20250822
  Transmission Date: 20251021
  Serious: Yes (Life-Threatening, Hospitalization)
  Sender: PFIZER
  Company Number: US-MLMSERVICE-20250806-PI604118-00224-1

PATIENT
  Age: 65 Year
  Sex: Male

DRUGS (8)
  1. MIDAZOLAM [Suspect]
     Active Substance: MIDAZOLAM
     Indication: Agitation
     Route: 042
  2. NALOXONE [Concomitant]
     Active Substance: NALOXONE
     Indication: Overdose
     Route: 045
  3. NALOXONE [Concomitant]
     Active Substance: NALOXONE
     Route: 042
  4. NALOXONE [Concomitant]
     Active Substance: NALOXONE
     Route: 040
  5. NALOXONE [Concomitant]
     Active Substance: NALOXONE
     Route: 040
  6. NALOXONE [Concomitant]
     Active Substance: NALOXONE
     Route: 040
  7. NALOXONE [Concomitant]
     Active Substance: NALOXONE
     Route: 040
  8. NALOXONE [Concomitant]
     Active Substance: NALOXONE

REACTIONS (2)
  - Respiratory acidosis [Unknown]
  - Respiratory failure [Unknown]
